FAERS Safety Report 7150007-9 (Version None)
Quarter: 2010Q4

REPORT INFORMATION
  Report Type: 
  Country: None (occurrence: None)
  Receive Date: 20101210
  Receipt Date: 20101202
  Transmission Date: 20110411
  Serious: Yes (Other)
  Sender: FDA-Public Use
  Company Number: US-US-EMD SERONO, INC.-7030841

PATIENT
  Sex: Male

DRUGS (1)
  1. REBIF [Suspect]
     Indication: PRODUCT USED FOR UNKNOWN INDICATION
     Route: 058
     Dates: start: 20101004

REACTIONS (5)
  - BLOOD GLUCOSE ABNORMAL [None]
  - BURNING SENSATION [None]
  - HYPOAESTHESIA [None]
  - MOOD ALTERED [None]
  - PAIN [None]
